FAERS Safety Report 7488458-5 (Version None)
Quarter: 2011Q2

REPORT INFORMATION
  Report Type: 
  Country: None (occurrence: None)
  Receive Date: 20110518
  Receipt Date: 20110506
  Transmission Date: 20111010
  Serious: Yes (Other)
  Sender: FDA-Public Use
  Company Number: PHHY2011BR40368

PATIENT
  Age: 59 Year
  Sex: Male

DRUGS (1)
  1. EXFORGE [Suspect]
     Indication: BLOOD PRESSURE
     Dosage: 320 MG VALSARTAN AND 5 MG AMLODIPINE

REACTIONS (3)
  - BLOOD PRESSURE ABNORMAL [None]
  - CEREBROVASCULAR ACCIDENT [None]
  - DRUG DEPENDENCE [None]
